FAERS Safety Report 13614914 (Version 1)
Quarter: 2017Q2

REPORT INFORMATION
  Report Type: Spontaneous
  Country: BE (occurrence: BE)
  Receive Date: 20170606
  Receipt Date: 20170606
  Transmission Date: 20170830
  Serious: Yes (Other)
  Sender: FDA-Public Use
  Company Number: BE-JNJFOC-20170528023

PATIENT
  Age: 63 Year
  Sex: Female

DRUGS (8)
  1. YONDELIS [Suspect]
     Active Substance: TRABECTEDIN
     Route: 065
  2. XANAX [Concomitant]
     Active Substance: ALPRAZOLAM
     Route: 065
  3. METFORMAX [Concomitant]
     Active Substance: METFORMIN HYDROCHLORIDE
     Route: 065
  4. YONDELIS [Suspect]
     Active Substance: TRABECTEDIN
     Indication: OVARIAN CANCER RECURRENT
     Route: 065
     Dates: start: 20170324
  5. UNI DIAMICRON [Concomitant]
     Active Substance: GLICLAZIDE
     Route: 065
  6. PANTOPRAZOLE [Concomitant]
     Active Substance: PANTOPRAZOLE
     Route: 065
  7. CAELYX [Suspect]
     Active Substance: DOXORUBICIN HYDROCHLORIDE
     Indication: OVARIAN CANCER RECURRENT
     Route: 065
     Dates: start: 20170324
  8. TRIBVIT [Concomitant]
     Route: 065

REACTIONS (19)
  - Tooth disorder [Unknown]
  - Fatigue [Unknown]
  - Dysgeusia [Unknown]
  - Decreased appetite [Unknown]
  - Polyneuropathy [Unknown]
  - Oedema peripheral [Unknown]
  - Mouth ulceration [Unknown]
  - Constipation [Recovered/Resolved]
  - Muscle spasms [Unknown]
  - Alopecia [Unknown]
  - Onychoclasis [Unknown]
  - Headache [Unknown]
  - Weight decreased [Unknown]
  - Deafness [Unknown]
  - Ear discomfort [Unknown]
  - Visual impairment [Unknown]
  - Myalgia [Unknown]
  - Dry skin [Unknown]
  - Nausea [Unknown]

NARRATIVE: CASE EVENT DATE: 20170519
